FAERS Safety Report 11920917 (Version 1)
Quarter: 2016Q1

REPORT INFORMATION
  Report Type: Spontaneous
  Country: US (occurrence: US)
  Receive Date: 20160115
  Receipt Date: 20160115
  Transmission Date: 20160526
  Serious: No
  Sender: FDA-Public Use
  Company Number: US-ASTELLAS-2015US040513

PATIENT
  Sex: Female

DRUGS (2)
  1. MYRBETRIQ [Suspect]
     Active Substance: MIRABEGRON
     Indication: PRODUCT USED FOR UNKNOWN INDICATION
     Route: 065
  2. MYRBETRIQ [Suspect]
     Active Substance: MIRABEGRON
     Dosage: 25 MG (CUT IN HALF,), ONCE DAILY
     Route: 048
     Dates: start: 201507

REACTIONS (6)
  - Dry throat [Recovered/Resolved]
  - Intentional product use issue [Unknown]
  - Dehydration [Recovered/Resolved]
  - Wrong technique in product usage process [Unknown]
  - Dry mouth [Unknown]
  - Treatment noncompliance [Unknown]

NARRATIVE: CASE EVENT DATE: 201507
